FAERS Safety Report 6244106-3 (Version None)
Quarter: 2009Q2

REPORT INFORMATION
  Report Type: 
  Country: None (occurrence: None)
  Receive Date: 20090625
  Receipt Date: 20080229
  Transmission Date: 20091009
  Serious: Yes (Other)
  Sender: FDA-Public Use
  Company Number: US-ASTRAZENECA-2007UW27736

PATIENT
  Age: 532 Month
  Sex: Female
  Weight: 88.5 kg

DRUGS (7)
  1. SEROQUEL [Suspect]
     Indication: DEPRESSION
     Route: 048
     Dates: start: 20051028, end: 20071209
  2. SEROQUEL [Suspect]
     Route: 048
     Dates: start: 20050627
  3. PAROXETINE HCL [Concomitant]
     Dosage: 10-40 MG
     Dates: start: 20050315
  4. RISPERDAL [Concomitant]
     Dates: start: 20050118
  5. LISINOPRIL [Concomitant]
     Dates: start: 20060109
  6. GLIPIZIDE [Concomitant]
     Dates: start: 20050312
  7. METFORMIN [Concomitant]
     Dates: start: 20060109

REACTIONS (5)
  - DIABETES MELLITUS [None]
  - DIABETES MELLITUS INADEQUATE CONTROL [None]
  - NEUROPATHY PERIPHERAL [None]
  - OBESITY [None]
  - TYPE 2 DIABETES MELLITUS [None]
